FAERS Safety Report 6983666-1 (Version None)
Quarter: 2010Q3

REPORT INFORMATION
  Report Type: 
  Country: None (occurrence: None)
  Receive Date: 20100914
  Receipt Date: 20081104
  Transmission Date: 20110219
  Serious: No
  Sender: FDA-Public Use
  Company Number: US-WYE-H06730108

PATIENT
  Age: 27 Year
  Sex: Male
  Weight: 81.72 kg

DRUGS (2)
  1. ADVIL LIQUI-GELS [Suspect]
     Indication: PYREXIA
     Route: 048
     Dates: start: 20081103, end: 20081103
  2. ADVIL LIQUI-GELS [Suspect]
     Indication: NASOPHARYNGITIS

REACTIONS (2)
  - HYPERAESTHESIA [None]
  - PRURITUS [None]
